FAERS Safety Report 23915247 (Version 1)
Quarter: 2024Q2

REPORT INFORMATION
  Report Type: Report from Study
  Country: CA (occurrence: CA)
  Receive Date: 20240529
  Receipt Date: 20240529
  Transmission Date: 20240716
  Serious: Yes (Hospitalization, Other)
  Sender: FDA-Public Use
  Company Number: CA-PFIZER INC-202400180204

PATIENT
  Age: 68 Year
  Sex: Male

DRUGS (6)
  1. RITUXIMAB [Suspect]
     Active Substance: RITUXIMAB
     Route: 065
  2. CISPLATIN [Suspect]
     Active Substance: CISPLATIN
     Route: 065
  3. CYTARABINE [Suspect]
     Active Substance: CYTARABINE
     Route: 065
  4. DEXAMETHASONE [Suspect]
     Active Substance: DEXAMETHASONE
     Route: 065
  5. IMBRUVICA [Suspect]
     Active Substance: IBRUTINIB
     Indication: Mantle cell lymphoma
     Route: 048
  6. CYCLOPHOSPHAMIDE/DOXORUBICIN HYDROCHLORIDE/LENALIDOMIDE/PREDNISONE/RIT [Concomitant]
     Route: 065

REACTIONS (4)
  - Asthenia [Not Recovered/Not Resolved]
  - Ligament sprain [Not Recovered/Not Resolved]
  - Nausea [Not Recovered/Not Resolved]
  - Palpitations [Not Recovered/Not Resolved]
